FAERS Safety Report 8031920-7 (Version None)
Quarter: 2012Q1

REPORT INFORMATION
  Report Type: 
  Country: None (occurrence: None)
  Receive Date: 20120109
  Receipt Date: 20111115
  Transmission Date: 20120608
  Serious: No
  Sender: FDA-Public Use
  Company Number: US-ABBOTT-11P-163-0876103-00

PATIENT
  Sex: Female

DRUGS (1)
  1. VICODIN [Suspect]
     Indication: PROCEDURAL PAIN

REACTIONS (3)
  - PHOTOPHOBIA [None]
  - HYPERACUSIS [None]
  - MIGRAINE [None]
